FAERS Safety Report 17680815 (Version 4)
Quarter: 2020Q3

REPORT INFORMATION
  Report Type: Spontaneous
  Country: GB (occurrence: GB)
  Receive Date: 20200417
  Receipt Date: 20200923
  Transmission Date: 20201102
  Serious: Yes (Hospitalization, Other)
  Sender: FDA-Public Use
  Company Number: GB-MYLANLABS-2020M1039295

PATIENT
  Age: 77 Year
  Sex: Male

DRUGS (2)
  1. CLOZARIL [Suspect]
     Active Substance: CLOZAPINE
     Dosage: UNK
     Route: 048
  2. CLOZARIL [Suspect]
     Active Substance: CLOZAPINE
     Indication: SCHIZOPHRENIA
     Dosage: UNK
     Route: 048
     Dates: start: 19990303

REACTIONS (7)
  - White blood cell count decreased [Recovered/Resolved]
  - Urosepsis [Unknown]
  - Hospitalisation [Recovering/Resolving]
  - Coronavirus infection [Unknown]
  - Haemoglobin decreased [Recovering/Resolving]
  - Product dose omission issue [Unknown]
  - Thrombocytopenia [Recovered/Resolved]

NARRATIVE: CASE EVENT DATE: 20200407
